FAERS Safety Report 8434447-3 (Version None)
Quarter: 2012Q2

REPORT INFORMATION
  Report Type: 
  Country: None (occurrence: None)
  Receive Date: 20120614
  Receipt Date: 20120608
  Transmission Date: 20120825
  Serious: Yes (Hospitalization)
  Sender: FDA-Public Use
  Company Number: US-AMGEN-USASP2012035995

PATIENT
  Age: 52 Year
  Sex: Male

DRUGS (1)
  1. ENBREL [Suspect]
     Indication: RHEUMATOID ARTHRITIS
     Dosage: UNK
     Dates: start: 20070501, end: 20070101

REACTIONS (7)
  - BLOOD PRESSURE INCREASED [None]
  - HAEMATOCHEZIA [None]
  - INJECTION SITE ERYTHEMA [None]
  - POLYP [None]
  - ATRIAL SEPTAL DEFECT [None]
  - INJECTION SITE REACTION [None]
  - INJECTION SITE SWELLING [None]
